FAERS Safety Report 10542847 (Version 1)
Quarter: 2014Q4

REPORT INFORMATION
  Report Type: Spontaneous
  Country: US (occurrence: None)
  Receive Date: 20141023
  Receipt Date: 20141023
  Transmission Date: 20150529
  Serious: Yes (Other)
  Sender: FDA-Public Use
  Company Number: 2014EXPUS00253

PATIENT
  Age: 70 Year
  Sex: Female

DRUGS (3)
  1. EXPAREL [Suspect]
     Active Substance: BUPIVACAINE
     Indication: POSTOPERATIVE ANALGESIA
     Dates: start: 20141009, end: 20141009
  2. LIDOCAINE (LIDOCAINE HYDROCHLORIDE) [Concomitant]
  3. LYRICA [Concomitant]
     Active Substance: PREGABALIN

REACTIONS (2)
  - Unresponsive to stimuli [None]
  - Confusional state [None]

NARRATIVE: CASE EVENT DATE: 20141009
